FAERS Safety Report 7156179-4 (Version None)
Quarter: 2010Q4

REPORT INFORMATION
  Report Type: 
  Country: None (occurrence: None)
  Receive Date: 20101214
  Receipt Date: 20101201
  Transmission Date: 20110411
  Serious: Yes (Hospitalization)
  Sender: FDA-Public Use
  Company Number: US-ELI_LILLY_AND_COMPANY-US201012000306

PATIENT
  Age: 63 Year
  Sex: Female

DRUGS (10)
  1. FORTEO [Suspect]
     Dosage: 20 UG, DAILY (1/D)
     Dates: start: 20100802
  2. SYNTHROID [Concomitant]
  3. MYFORTIC [Concomitant]
     Indication: SYSTEMIC LUPUS ERYTHEMATOSUS
  4. COUMADIN [Concomitant]
  5. FUROSEMIDE [Concomitant]
  6. POTASSIUM CHLORIDE [Concomitant]
  7. GABAPENTIN [Concomitant]
  8. ZYRTEC [Concomitant]
  9. SINGULAIR [Concomitant]
     Indication: ASTHMA
  10. ADVAIR DISKUS 100/50 [Concomitant]
     Indication: ASTHMA

REACTIONS (5)
  - DRUG DOSE OMISSION [None]
  - HERPES ZOSTER [None]
  - PAIN [None]
  - PNEUMONIA [None]
  - SLEEP DISORDER [None]
